FAERS Safety Report 13619465 (Version 1)
Quarter: 2017Q2

REPORT INFORMATION
  Report Type: Spontaneous
  Country: US (occurrence: US)
  Receive Date: 20170606
  Receipt Date: 20170606
  Transmission Date: 20170830
  Serious: No
  Sender: FDA-Public Use
  Company Number: US-AMGEN-USASP2017003403

PATIENT
  Age: 84 Year
  Sex: Male
  Weight: 71.2 kg

DRUGS (9)
  1. ABRAXANE [Concomitant]
     Active Substance: PACLITAXEL
     Dosage: 140 MG, UNK
     Dates: start: 20161230
  2. KYTRIL [Concomitant]
     Active Substance: GRANISETRON HYDROCHLORIDE
     Dosage: 1 MG, UNK
     Dates: start: 20161230
  3. DECADRON [Concomitant]
     Active Substance: DEXAMETHASONE
     Indication: NON-SMALL CELL LUNG CANCER
     Dosage: 8 MG, UNK
     Dates: start: 20161216
  4. EMEND [Concomitant]
     Active Substance: APREPITANT
     Dosage: 150 MG, UNK
     Dates: start: 20161230
  5. KYTRIL [Concomitant]
     Active Substance: GRANISETRON HYDROCHLORIDE
     Dosage: 1 MG, UNK
     Dates: start: 20161216
  6. DECADRON [Concomitant]
     Active Substance: DEXAMETHASONE
     Dosage: 8 MG, UNK
     Dates: start: 20161230
  7. PROCRIT [Suspect]
     Active Substance: ERYTHROPOIETIN
     Indication: ANAEMIA
     Dosage: 40000 UNIT, QWK
     Route: 058
     Dates: start: 20161118
  8. ABRAXANE [Concomitant]
     Active Substance: PACLITAXEL
     Indication: NON-SMALL CELL LUNG CANCER
     Dosage: 140 MG, UNK
     Dates: start: 20161216
  9. CARBOPLATIN. [Concomitant]
     Active Substance: CARBOPLATIN
     Indication: NON-SMALL CELL LUNG CANCER
     Dosage: 338.9 MG, UNK
     Dates: start: 20161230

REACTIONS (3)
  - Unevaluable event [Unknown]
  - Haemoglobin abnormal [Not Recovered/Not Resolved]
  - Off label use [Not Recovered/Not Resolved]

NARRATIVE: CASE EVENT DATE: 20161118
